FAERS Safety Report 7630604-4 (Version None)
Quarter: 2011Q3

REPORT INFORMATION
  Report Type: 
  Country: None (occurrence: None)
  Receive Date: 20110722
  Receipt Date: 20110718
  Transmission Date: 20111222
  Serious: Yes (Life-Threatening, Hospitalization, Disabling)
  Sender: FDA-Public Use
  Company Number: US-ELI_LILLY_AND_COMPANY-US200906003306

PATIENT
  Sex: Male
  Weight: 108.84 kg

DRUGS (13)
  1. BYETTA [Suspect]
     Indication: TYPE 2 DIABETES MELLITUS
     Dosage: 5 UG, 2/D
     Dates: start: 20071228, end: 20080107
  2. CYANOCOBALAMIN [Concomitant]
  3. LIPITOR [Concomitant]
  4. LANTUS [Concomitant]
     Dates: start: 20080101
  5. GLIMEPIRIDE [Concomitant]
  6. HUMALOG                                 /GFR/ [Concomitant]
     Dates: start: 20080101
  7. ENALAPRIL MALEATE [Concomitant]
  8. GABAPENTIN [Concomitant]
  9. AMARYL [Concomitant]
     Indication: TYPE 2 DIABETES MELLITUS
     Dates: end: 20080101
  10. METFORMIN HCL [Concomitant]
  11. IBUPROFEN [Concomitant]
  12. ZETIA [Concomitant]
  13. AGGRENOX [Concomitant]

REACTIONS (6)
  - PANCREATITIS [None]
  - OFF LABEL USE [None]
  - GASTRITIS [None]
  - ABDOMINAL PAIN UPPER [None]
  - HYPERSENSITIVITY [None]
  - CEREBROVASCULAR ACCIDENT [None]
